FAERS Safety Report 6094820-8 (Version None)
Quarter: 2009Q1

REPORT INFORMATION
  Report Type: 
  Country: None (occurrence: None)
  Receive Date: 20090227
  Receipt Date: 20090220
  Transmission Date: 20090719
  Serious: Yes (Other)
  Sender: FDA-Public Use
  Company Number: US-RANBAXY-2008US-15483

PATIENT

DRUGS (4)
  1. ISOTRETINOIN [Suspect]
     Indication: DRUG USE FOR UNKNOWN INDICATION
     Dosage: 20 MG, TID
     Route: 048
     Dates: start: 20071204, end: 20080428
  2. ISOTRETINOIN [Suspect]
     Dosage: 40 MG, UNK
     Route: 048
  3. MACROBID [Concomitant]
     Indication: URINARY TRACT INFECTION
     Dosage: 100 MG, QD
     Route: 048
     Dates: start: 20080701
  4. ORAL CONTRACEPTIVE [Concomitant]
     Indication: CONTRACEPTION

REACTIONS (3)
  - PRE-ECLAMPSIA [None]
  - PREGNANCY [None]
  - URINARY TRACT INFECTION [None]
